FAERS Safety Report 10149906 (Version 2)
Quarter: 2014Q2

REPORT INFORMATION
  Report Type: Report from Study
  Country: US (occurrence: US)
  Receive Date: 20140502
  Receipt Date: 20140502
  Transmission Date: 20141212
  Serious: Yes (Other)
  Sender: FDA-Public Use
  Company Number: US-SA-2013SA133912

PATIENT
  Age: 52 Year
  Sex: Female

DRUGS (29)
  1. AUBAGIO [Suspect]
     Indication: MULTIPLE SCLEROSIS
     Route: 048
     Dates: start: 20131214
  2. ALL OTHER THERAPEUTIC PRODUCTS [Concomitant]
  3. ALEVE [Concomitant]
  4. BENADRYL [Concomitant]
  5. CALCIUM CARBONATE [Concomitant]
     Dosage: DOSE: 500
  6. CALTRATE [Concomitant]
  7. CINNAMOMUM VERUM OIL [Concomitant]
  8. ALL OTHER THERAPEUTIC PRODUCTS [Concomitant]
     Dosage: DOSE: 140-100
  9. CRESTOR [Concomitant]
  10. DOCOSAHEXANOIC ACID [Concomitant]
  11. FENOFIBRATE [Concomitant]
  12. FISH OIL [Concomitant]
  13. LINUM USITATISSIMUM SEED OIL [Concomitant]
     Dosage: DOSE: 1300-67
  14. HUMALOG [Concomitant]
     Dosage: DOSE: 75-25 75-25/M
  15. IBUPROFEN [Concomitant]
  16. LEVOXYL [Concomitant]
  17. MAGNESIUM [Concomitant]
  18. MECLIZINE [Concomitant]
  19. METOPROLOL TARTRATE [Concomitant]
  20. MULTIVITAMINS [Concomitant]
  21. NABUMETONE [Concomitant]
  22. PROZAC [Concomitant]
  23. RANITIDINE [Concomitant]
  24. RELPAX [Concomitant]
  25. TRAMADOL [Concomitant]
  26. VITAMIN C [Concomitant]
  27. VITAMIN D [Concomitant]
     Dosage: DOSE:10000 UNIT(S)
  28. VYVANSE [Concomitant]
  29. WELLBUTRIN [Concomitant]

REACTIONS (6)
  - Urinary retention [Unknown]
  - Blood glucose increased [Recovered/Resolved]
  - Vertigo [Recovered/Resolved]
  - Dizziness [Unknown]
  - Feeling hot [Unknown]
  - Nausea [Recovered/Resolved]
